FAERS Safety Report 8141338-4 (Version None)
Quarter: 2012Q1

REPORT INFORMATION
  Report Type: 
  Country: None (occurrence: None)
  Receive Date: 20120216
  Receipt Date: 20120201
  Transmission Date: 20120608
  Serious: Yes (Other)
  Sender: FDA-Public Use
  Company Number: BR-ROCHE-1037005

PATIENT
  Sex: Female
  Weight: 72 kg

DRUGS (2)
  1. MESIGYNA [Concomitant]
     Dates: start: 20110601
  2. NAPROSYN [Suspect]
     Indication: ARTHRALGIA
     Route: 048
     Dates: start: 20120126, end: 20120130

REACTIONS (6)
  - GAIT DISTURBANCE [None]
  - RETCHING [None]
  - ABDOMINAL PAIN UPPER [None]
  - HAEMATOCHEZIA [None]
  - PAIN IN EXTREMITY [None]
  - MALAISE [None]
